FAERS Safety Report 10908174 (Version 1)
Quarter: 2015Q1

REPORT INFORMATION
  Report Type: Spontaneous
  Country: US (occurrence: US)
  Receive Date: 20150312
  Receipt Date: 20150312
  Transmission Date: 20150721
  Serious: No
  Sender: FDA-Public Use
  Company Number: US-INCYTE CORPORATION-2015IN000459

PATIENT
  Age: 60 Year
  Sex: Female

DRUGS (14)
  1. SULFADIAZINE CREAM [Concomitant]
     Route: 061
  2. ENALAPRIL [Concomitant]
     Active Substance: ENALAPRIL
  3. FENOFIBRATE. [Concomitant]
     Active Substance: FENOFIBRATE
  4. POTASSIUM [Concomitant]
     Active Substance: POTASSIUM
  5. POTASSIUM CHLORIDE. [Concomitant]
     Active Substance: POTASSIUM CHLORIDE
  6. FUROSEMIDE. [Concomitant]
     Active Substance: FUROSEMIDE
  7. METOPROLOL [Concomitant]
     Active Substance: METOPROLOL
  8. JAKAFI [Suspect]
     Active Substance: RUXOLITINIB
     Indication: MYELOFIBROSIS
     Dosage: 10 MG, BID
     Route: 048
     Dates: start: 20150117
  9. METFORMIN [Concomitant]
     Active Substance: METFORMIN HYDROCHLORIDE
  10. NOVOLOG [Concomitant]
     Active Substance: INSULIN ASPART
  11. LEVEMIR [Concomitant]
     Active Substance: INSULIN DETEMIR
  12. DAPSONE. [Concomitant]
     Active Substance: DAPSONE
  13. PREDNISONE. [Concomitant]
     Active Substance: PREDNISONE
  14. TRIAMCINOLONE CREAM [Concomitant]
     Route: 061

REACTIONS (2)
  - Skin discolouration [Not Recovered/Not Resolved]
  - Peripheral swelling [Unknown]

NARRATIVE: CASE EVENT DATE: 201501
